FAERS Safety Report 5005050-2 (Version None)
Quarter: 2006Q2

REPORT INFORMATION
  Report Type: 
  Country: None (occurrence: None)
  Receive Date: 20060512
  Receipt Date: 20060504
  Transmission Date: 20061013
  Serious: Yes (Hospitalization, Other)
  Sender: FDA-Public Use
  Company Number: HQWYE195505MAY06

PATIENT
  Age: 25 Month
  Sex: Female

DRUGS (6)
  1. ADVIL [Suspect]
     Indication: GASTROENTERITIS
     Dates: start: 20060208, end: 20060213
  2. ADVIL [Suspect]
     Indication: INFLUENZA
     Dates: start: 20060208, end: 20060213
  3. ADVIL [Suspect]
     Indication: PYREXIA
     Dates: start: 20060208, end: 20060213
  4. ERCEFURYL (NIFUROXAZIDE) [Concomitant]
  5. ACETAMINOPHEN [Concomitant]
  6. TIORFAN (ACETORPHAN) [Concomitant]

REACTIONS (5)
  - ANOREXIA [None]
  - ESCHERICHIA URINARY TRACT INFECTION [None]
  - GENERAL PHYSICAL CONDITION ABNORMAL [None]
  - PYELONEPHRITIS [None]
  - WEIGHT DECREASED [None]
